FAERS Safety Report 5336727-7 (Version None)
Quarter: 2007Q2

REPORT INFORMATION
  Report Type: 
  Country: None (occurrence: None)
  Receive Date: 20070529
  Receipt Date: 20070523
  Transmission Date: 20071010
  Serious: Yes (Death, Hospitalization)
  Sender: FDA-Public Use
  Company Number: PHBS2007JP08529

PATIENT
  Age: 67 Year
  Sex: Female
  Weight: 45 kg

DRUGS (6)
  1. CYCLOSPORINE [Suspect]
     Indication: DERMATOMYOSITIS
     Dosage: 175 MG/D
     Route: 065
  2. CYCLOSPORINE [Suspect]
     Dosage: 75 MG/D
     Route: 065
  3. CYCLOSPORINE [Suspect]
     Dosage: 125 MG/D
     Route: 065
  4. METHYLPREDNISOLONE 16MG TAB [Concomitant]
     Indication: DERMATOMYOSITIS
     Dosage: 500 MG/D
  5. METHYLPREDNISOLONE 16MG TAB [Concomitant]
     Dosage: 500 MG/D
  6. PREDNISOLONE [Concomitant]
     Indication: DERMATOMYOSITIS
     Dosage: 45 MG/D
     Route: 065

REACTIONS (5)
  - CYTOMEGALOVIRUS ANTIGEN POSITIVE [None]
  - CYTOMEGALOVIRUS INFECTION [None]
  - DISEASE PROGRESSION [None]
  - DRUG LEVEL INCREASED [None]
  - INTERSTITIAL LUNG DISEASE [None]
